FAERS Safety Report 21096261 (Version 1)
Quarter: 2022Q3

REPORT INFORMATION
  Report Type: Spontaneous
  Country: US (occurrence: US)
  Receive Date: 20220718
  Receipt Date: 20220718
  Transmission Date: 20221027
  Serious: No
  Sender: FDA-Public Use
  Company Number: US-BRISTOL-MYERS SQUIBB COMPANY-2022-075718

PATIENT
  Age: 75 Year
  Sex: Male
  Weight: 79.83 kg

DRUGS (1)
  1. REVLIMID [Suspect]
     Active Substance: LENALIDOMIDE
     Indication: Plasma cell myeloma
     Dosage: FREQUENCY-1 CAP PO QD.
     Route: 048
     Dates: start: 20220428

REACTIONS (4)
  - Constipation [Unknown]
  - Dizziness [Unknown]
  - Somnolence [Unknown]
  - Off label use [Unknown]
